FAERS Safety Report 8820254 (Version 1)
Quarter: 2012Q4

REPORT INFORMATION
  Report Type: 
  Country: US (occurrence: US)
  Receive Date: 20121002
  Receipt Date: 20121002
  Transmission Date: 20130627
  Serious: No
  Sender: FDA-Public Use
  Company Number: US-BIOGENIDEC-2012BI041287

PATIENT
  Age: 50 Year
  Sex: Female

DRUGS (1)
  1. TYSABRI [Suspect]
     Indication: MULTIPLE SCLEROSIS
     Route: 042
     Dates: start: 20120507

REACTIONS (7)
  - Memory impairment [Not Recovered/Not Resolved]
  - Fall [Recovered/Resolved]
  - Limb injury [Not Recovered/Not Resolved]
  - Muscle spasms [Not Recovered/Not Resolved]
  - Neck pain [Not Recovered/Not Resolved]
  - Rectal spasm [Not Recovered/Not Resolved]
  - Asthenia [Not Recovered/Not Resolved]
